FAERS Safety Report 4865198-X (Version None)
Quarter: 2005Q4

REPORT INFORMATION
  Report Type: 
  Country: None (occurrence: None)
  Receive Date: 20051223
  Receipt Date: 20050720
  Transmission Date: 20060501
  Serious: Yes (Other)
  Sender: FDA-Public Use
  Company Number: FR-GLAXOSMITHKLINE-B0390320A

PATIENT
  Age: 56 Year
  Sex: Female
  Weight: 64 kg

DRUGS (8)
  1. ZYBAN [Suspect]
     Dosage: 150MG PER DAY
     Route: 048
     Dates: start: 20050720, end: 20050720
  2. ULTRALEVURE [Concomitant]
     Route: 065
  3. DICETEL [Concomitant]
     Route: 065
  4. EUPANTOL [Concomitant]
     Dosage: 1UNIT PER DAY
     Dates: start: 20020101
  5. ELISOR [Concomitant]
     Dosage: 1UNIT PER DAY
     Route: 065
     Dates: start: 20020101
  6. OROCAL D3 [Concomitant]
     Indication: OSTEOPOROSIS PROPHYLAXIS
     Dosage: 1UNIT PER DAY
     Route: 065
     Dates: start: 20020101
  7. STILNOX [Concomitant]
     Dosage: 1UNIT PER DAY
     Route: 065
     Dates: start: 20020101
  8. OPTRUMA [Concomitant]
     Dosage: 1UNIT PER DAY
     Route: 065
     Dates: start: 20020101

REACTIONS (9)
  - DIZZINESS [None]
  - FATIGUE [None]
  - HYPOTENSION [None]
  - LOSS OF CONSCIOUSNESS [None]
  - MALAISE [None]
  - MUSCLE CONTRACTURE [None]
  - SPEECH DISORDER [None]
  - TREMOR [None]
  - TRISMUS [None]
